FAERS Safety Report 22712965 (Version 3)
Quarter: 2024Q1

REPORT INFORMATION
  Report Type: Spontaneous
  Country: DE (occurrence: DE)
  Receive Date: 20230717
  Receipt Date: 20240111
  Transmission Date: 20240410
  Serious: Yes (Other)
  Sender: FDA-Public Use
  Company Number: DE-JNJFOC-20230723100

PATIENT
  Sex: Female
  Weight: 60 kg

DRUGS (4)
  1. STELARA [Suspect]
     Active Substance: USTEKINUMAB
     Indication: Crohn^s disease
     Dosage: AT 8
     Route: 058
  2. CORTISONE [Concomitant]
     Active Substance: CORTISONE
  3. RAMIDIPIN [Concomitant]
     Dosage: 5 MG/5 MG
     Dates: start: 2010
  4. METHYLDOPA [Concomitant]
     Active Substance: METHYLDOPA
     Dosage: ONCE MORNING

REACTIONS (2)
  - Caesarean section [Recovered/Resolved]
  - Exposure during pregnancy [Recovered/Resolved]

NARRATIVE: CASE EVENT DATE: 20220101
